FAERS Safety Report 5793387-9 (Version None)
Quarter: 2008Q2

REPORT INFORMATION
  Report Type: 
  Country: None (occurrence: None)
  Receive Date: 20080627
  Receipt Date: 20080623
  Transmission Date: 20081010
  Serious: Yes (Other)
  Sender: FDA-Public Use
  Company Number: GB-ROCHE-569668

PATIENT
  Sex: Female
  Weight: 94 kg

DRUGS (16)
  1. ORLISTAT [Suspect]
     Indication: OBESITY
     Route: 048
     Dates: start: 20080131
  2. BENDROFLUMETHIAZIDE [Concomitant]
     Indication: HYPERTENSION
     Route: 048
  3. ASPIRIN [Concomitant]
     Route: 048
     Dates: start: 20060310
  4. GLYCERYL TRINITRATE SPRAY [Concomitant]
     Route: 060
  5. NICORANDIL [Concomitant]
     Route: 048
     Dates: start: 20060303
  6. ATENOLOL [Concomitant]
     Indication: HYPERTENSION
     Route: 048
     Dates: start: 20050112
  7. SIMVASTATIN [Concomitant]
     Route: 048
     Dates: start: 20010806
  8. AMLODIPINE [Concomitant]
     Indication: HYPERTENSION
     Route: 048
     Dates: start: 19990628
  9. FLUOXETINE [Concomitant]
     Indication: DEPRESSION
     Route: 048
     Dates: start: 20060303
  10. ISOSORBIDE MONONITRATE [Concomitant]
     Route: 048
     Dates: start: 20060119
  11. TROSPIUM CHLORIDE [Concomitant]
     Route: 048
     Dates: start: 20040405
  12. HYOSCINE HBR HYT [Concomitant]
     Indication: IRRITABLE BOWEL SYNDROME
     Route: 048
     Dates: start: 20040802
  13. THIAMINE [Concomitant]
     Route: 048
     Dates: start: 20030409
  14. VIT B [Concomitant]
     Dosage: REPORTED AS VITAMIN B
     Route: 048
     Dates: start: 20030409
  15. LOSARTAN POTASSIUM [Concomitant]
     Indication: HYPERTENSION
     Route: 048
     Dates: start: 20010806
  16. DIAZEPAM [Concomitant]
     Route: 048
     Dates: start: 20010320

REACTIONS (2)
  - PAIN IN EXTREMITY [None]
  - TYPE 2 DIABETES MELLITUS [None]
